FAERS Safety Report 5377520-9 (Version None)
Quarter: 2007Q3

REPORT INFORMATION
  Report Type: 
  Country: None (occurrence: None)
  Receive Date: 20070703
  Receipt Date: 20070627
  Transmission Date: 20080115
  Serious: Yes (Hospitalization)
  Sender: FDA-Public Use
  Company Number: PHBS2007SE10813

PATIENT
  Age: 70 Year
  Sex: Male

DRUGS (5)
  1. TEGRETOL [Suspect]
     Indication: MENINGOENCEPHALITIS HERPETIC
     Dosage: 1 G/DAY
     Route: 048
  2. SIMVASTATIN [Concomitant]
  3. NORVASC [Concomitant]
  4. TROMBYL [Concomitant]
  5. METOPROLOL TARTRATE [Concomitant]

REACTIONS (7)
  - BALANCE DISORDER [None]
  - C-REACTIVE PROTEIN INCREASED [None]
  - CHEST X-RAY ABNORMAL [None]
  - DEPRESSED LEVEL OF CONSCIOUSNESS [None]
  - DIZZINESS [None]
  - DRUG LEVEL INCREASED [None]
  - INFECTION [None]
